FAERS Safety Report 12440570 (Version 3)
Quarter: 2018Q4

REPORT INFORMATION
  Report Type: Report from Study
  Country: US (occurrence: US)
  Receive Date: 20160606
  Receipt Date: 20181029
  Transmission Date: 20190204
  Serious: Yes (Hospitalization)
  Sender: FDA-Public Use
  Company Number: US-ACTELION-A-NJ2016-137131

PATIENT
  Age: 60 Year
  Sex: Female
  Weight: 90.7 kg

DRUGS (1)
  1. OPSUMIT [Suspect]
     Active Substance: MACITENTAN
     Indication: PULMONARY ARTERIAL HYPERTENSION
     Dosage: 10 MG, QD
     Route: 048
     Dates: start: 20150311

REACTIONS (6)
  - Inguinal hernia repair [Unknown]
  - Oxygen saturation decreased [Unknown]
  - Dizziness [Unknown]
  - Hernia repair [Unknown]
  - Inguinal hernia [Unknown]
  - Presyncope [Unknown]

NARRATIVE: CASE EVENT DATE: 20181008
